FAERS Safety Report 6063952-2 (Version None)
Quarter: 2009Q1

REPORT INFORMATION
  Report Type: 
  Country: None (occurrence: None)
  Receive Date: 20090204
  Receipt Date: 20090126
  Transmission Date: 20090719
  Serious: Yes (Other)
  Sender: FDA-Public Use
  Company Number: PHHY2008FR28163

PATIENT
  Sex: Male

DRUGS (3)
  1. STALEVO 100 [Suspect]
     Indication: PARKINSON'S DISEASE
     Dosage: 200/100/25 MG 5 TIMES PER DAY
  2. NSAID'S [Suspect]
     Indication: CYSTITIS
     Dosage: UNK
  3. MODOPAR [Concomitant]
     Dosage: 50/12.5 MG 3 TIMES PER DAY

REACTIONS (6)
  - HAEMATURIA [None]
  - HAEMORRHAGE [None]
  - POLLAKIURIA [None]
  - PULMONARY FUNCTION TEST DECREASED [None]
  - RESPIRATORY RATE INCREASED [None]
  - WHITE BLOOD CELLS URINE [None]
